FAERS Safety Report 5557885-5 (Version None)
Quarter: 2007Q4

REPORT INFORMATION
  Report Type: 
  Country: None (occurrence: None)
  Receive Date: 20071130
  Receipt Date: 20070917
  Transmission Date: 20080405
  Serious: No
  Sender: FDA-Public Use
  Company Number: US200708006079

PATIENT
  Age: 58 Year
  Sex: Female

DRUGS (13)
  1. BYETTA [Suspect]
     Indication: INSULIN-REQUIRING TYPE II DIABETES MELLITUS
     Dosage: 5 UG, SUBCUTANEOUS
     Route: 058
     Dates: start: 20070823
  2. EXENATIDE PEN, DISPOSABLE DEVICE (EXENATIDE PEN) PEN, DISPOSABLE [Concomitant]
  3. APIDRA [Concomitant]
  4. ACCOLATE [Concomitant]
  5. METFORMIN HCL [Concomitant]
  6. PROTONIX [Concomitant]
  7. GLYBURIDE (GLIBENBLAMIDE) [Concomitant]
  8. DOXEPIN HCL [Concomitant]
  9. SEROQUEL [Concomitant]
  10. ASPIRIN [Concomitant]
  11. QVAR [Concomitant]
  12. XOPENEX [Concomitant]
  13. RESTORIL [Concomitant]

REACTIONS (4)
  - DIZZINESS [None]
  - NAUSEA [None]
  - NODULE [None]
  - OEDEMA PERIPHERAL [None]
